FAERS Safety Report 24259406 (Version 1)
Quarter: 2024Q3

REPORT INFORMATION
  Report Type: Spontaneous
  Country: LT (occurrence: LT)
  Receive Date: 20240828
  Receipt Date: 20240828
  Transmission Date: 20241016
  Serious: Yes (Death, Life-Threatening, Hospitalization)
  Sender: ACCORD
  Company Number: None

PATIENT
  Age: 65 Year
  Sex: Male

DRUGS (4)
  1. METHOTREXATE [Suspect]
     Active Substance: METHOTREXATE
     Indication: Arthritis
     Dosage: 4 TABLETS PER WEEK
  2. EMPAGLIFLOZIN [Concomitant]
     Active Substance: EMPAGLIFLOZIN
     Dosage: 10MG TABLET
  3. ROSUVASTATIN [Concomitant]
     Active Substance: ROSUVASTATIN\ROSUVASTATIN CALCIUM
  4. TORSEMIDE [Concomitant]
     Active Substance: TORSEMIDE

REACTIONS (10)
  - Renal failure [Fatal]
  - Infection [Fatal]
  - Mucosal disorder [Fatal]
  - Off label use [Fatal]
  - Skin erosion [Fatal]
  - Overdose [Fatal]
  - Leukopenia [Fatal]
  - Agranulocytosis [Fatal]
  - Sepsis [Fatal]
  - Myelosuppression [Fatal]

NARRATIVE: CASE EVENT DATE: 20240701
